FAERS Safety Report 15852642 (Version 3)
Quarter: 2019Q1

REPORT INFORMATION
  Report Type: Report from Study
  Country: IT (occurrence: IT)
  Receive Date: 20190122
  Receipt Date: 20190213
  Transmission Date: 20190417
  Serious: Yes (Other)
  Sender: FDA-Public Use
  Company Number: IT-AUROBINDO-AUR-APL-2019-002626

PATIENT

DRUGS (20)
  1. LEVETIRACETAM. [Suspect]
     Active Substance: LEVETIRACETAM
     Dosage: 45 MILLIGRAM/KILOGRAM, DAILY
     Route: 065
  2. MIDAZOLAM [Concomitant]
     Active Substance: MIDAZOLAM HYDROCHLORIDE
     Indication: PARTIAL SEIZURES
     Dosage: 0.2 MILLIGRAM/KILOGRAM, EVERY HOUR
     Route: 065
  3. LEVETIRACETAM. [Suspect]
     Active Substance: LEVETIRACETAM
     Indication: PARTIAL SEIZURES
     Dosage: 60 MILLIGRAM/KILOGRAM, DAILY
     Route: 065
  4. QUINIDINE [Suspect]
     Active Substance: QUINIDINE
     Dosage: 4-5 MG WITH A TARGET OF 60 MG/KG
     Route: 065
  5. QUINIDINE [Suspect]
     Active Substance: QUINIDINE
     Dosage: 70 MILLIGRAM/KILOGRAM, INCREASED FROM 50 TO 70 MG/KG IN 2 WEEKS
     Route: 065
  6. QUINIDINE [Suspect]
     Active Substance: QUINIDINE
     Dosage: 75 MILLIGRAM/KILOGRAM
     Route: 065
  7. PHENOBARBITAL. [Interacting]
     Active Substance: PHENOBARBITAL
     Indication: PARTIAL SEIZURES
     Dosage: 3 MILLIGRAM/KILOGRAM, DAILY, LATER REDUCED TO 3 MG/KG
     Route: 065
  8. PHENOBARBITAL. [Interacting]
     Active Substance: PHENOBARBITAL
     Dosage: 8 MILLIGRAM/KILOGRAM, DAILY, INCREASED TO 8 MG/KG/DAY
     Route: 065
  9. QUINIDINE [Suspect]
     Active Substance: QUINIDINE
     Dosage: 35 MILLIGRAM/KILOGRAM, DAILY, WAS REDUCED AGAIN TO 35MG/KG/DAY
     Route: 065
  10. CLONAZEPAM. [Concomitant]
     Active Substance: CLONAZEPAM
     Indication: PARTIAL SEIZURES
     Dosage: 0.2 MILLIGRAM/KILOGRAM
     Route: 048
  11. CARBAMAZEPINE. [Concomitant]
     Active Substance: CARBAMAZEPINE
     Indication: PARTIAL SEIZURES
     Dosage: UNKNOWN DOSE
     Route: 065
  12. QUINIDINE [Suspect]
     Active Substance: QUINIDINE
     Indication: PARTIAL SEIZURES
     Dosage: 2 MILLIGRAM/KILOGRAM, FOUR TIMES/DAY, 8 MG/DAY
     Route: 065
  13. QUINIDINE [Suspect]
     Active Substance: QUINIDINE
     Dosage: 50 MILLIGRAM/KILOGRAM, DAILY, TITRATED UP TO A TARGET DOSE OF 50 MG/KG/DAY
     Route: 065
  14. QUINIDINE [Suspect]
     Active Substance: QUINIDINE
     Dosage: 180 MILLIGRAM/KILOGRAM, ONCE A DAY, DOSE WAS INCREASED TO 45 MG/KG
     Route: 065
  15. PHENOBARBITAL. [Interacting]
     Active Substance: PHENOBARBITAL
     Dosage: 5 MILLIGRAM/KILOGRAM, DAILY
     Route: 065
  16. PYRIDOXINE [Concomitant]
     Active Substance: PYRIDOXINE
     Indication: PARTIAL SEIZURES
     Dosage: 30 MILLIGRAM/KILOGRAM
     Route: 048
  17. POTASSIUM BROMIDE [Concomitant]
     Active Substance: POTASSIUM BROMIDE
     Indication: PARTIAL SEIZURES
     Dosage: UP TO 45 MG/KG/DAY
     Route: 065
  18. QUINIDINE [Suspect]
     Active Substance: QUINIDINE
     Dosage: 45 MILLIGRAM/KILOGRAM, DAILY
     Route: 065
  19. LEVETIRACETAM. [Suspect]
     Active Substance: LEVETIRACETAM
     Dosage: UNK, UPTO 100 MG/KG/DAY
     Route: 065
  20. TOPIRAMATE. [Concomitant]
     Active Substance: TOPIRAMATE
     Indication: PARTIAL SEIZURES
     Dosage: 5 MILLIGRAM/KILOGRAM, DAILY
     Route: 065

REACTIONS (9)
  - Electrocardiogram QT prolonged [Recovered/Resolved]
  - Multiple-drug resistance [Unknown]
  - Seizure [Recovering/Resolving]
  - Atrioventricular block [Unknown]
  - Status epilepticus [Recovered/Resolved]
  - Blood ketone body decreased [Unknown]
  - Drug level decreased [Recovered/Resolved]
  - Drug ineffective [Unknown]
  - Drug interaction [Recovered/Resolved]
